FAERS Safety Report 8272998-5 (Version None)
Quarter: 2012Q2

REPORT INFORMATION
  Report Type: 
  Country: None (occurrence: None)
  Receive Date: 20120411
  Receipt Date: 20120403
  Transmission Date: 20120825
  Serious: Yes (Other)
  Sender: FDA-Public Use
  Company Number: US-BAYER-2011-069848

PATIENT
  Age: 29 Year
  Sex: Female
  Weight: 70.295 kg

DRUGS (7)
  1. MARIJUANA [Concomitant]
  2. KARIVA [Concomitant]
     Dosage: UNK
  3. YAZ [Suspect]
     Indication: CONTRACEPTION
     Dosage: UNK
     Route: 048
     Dates: start: 20030101
  4. PERIACTIN [Concomitant]
  5. DIFLUCAN [Concomitant]
  6. TYLENOL W/ CODEINE NO. 3 [Concomitant]
  7. DIFFERIN [Concomitant]

REACTIONS (5)
  - INJURY [None]
  - PAIN [None]
  - EMOTIONAL DISTRESS [None]
  - CHOLECYSTITIS CHRONIC [None]
  - GALLBLADDER INJURY [None]
